FAERS Safety Report 5824803-1 (Version None)
Quarter: 2008Q3

REPORT INFORMATION
  Report Type: 
  Country: None (occurrence: None)
  Receive Date: 20080728
  Receipt Date: 20010719
  Transmission Date: 20090109
  Serious: Yes (Death, Congenital Anomaly)
  Sender: FDA-Public Use
  Company Number: US-ABBOTT-08P-163-0459007-00

PATIENT

DRUGS (2)
  1. DEPAKOTE [Suspect]
     Indication: DRUG EXPOSURE DURING PREGNANCY
     Route: 050
  2. DEPAKOTE [Suspect]
     Indication: PATERNAL DRUGS AFFECTING FOETUS

REACTIONS (3)
  - ANENCEPHALY [None]
  - CONGENITAL CENTRAL NERVOUS SYSTEM ANOMALY [None]
  - PATERNAL DRUGS AFFECTING FOETUS [None]
